FAERS Safety Report 4541978-5 (Version None)
Quarter: 2004Q4

REPORT INFORMATION
  Report Type: 
  Country: None (occurrence: None)
  Receive Date: 20041227
  Receipt Date: 20041207
  Transmission Date: 20050328
  Serious: Yes (Other)
  Sender: FDA-Public Use
  Company Number: DSA_25452_2004

PATIENT
  Age: 51 Year
  Sex: Female
  Weight: 78.0187 kg

DRUGS (2)
  1. CARDIZEM LA [Suspect]
     Indication: HYPERTENSION
     Dosage: 250 MG QD PO
     Route: 048
     Dates: start: 20041118, end: 20041120
  2. SYNTHROID [Concomitant]

REACTIONS (2)
  - GENERALISED ERYTHEMA [None]
  - GENERALISED OEDEMA [None]
